FAERS Safety Report 5759070-0 (Version None)
Quarter: 2008Q2

REPORT INFORMATION
  Report Type: 
  Country: None (occurrence: None)
  Receive Date: 20080604
  Receipt Date: 20080522
  Transmission Date: 20081010
  Serious: Yes (Hospitalization)
  Sender: FDA-Public Use
  Company Number: ES-WATSON-2008-03194

PATIENT
  Age: 68 Year
  Sex: Male

DRUGS (3)
  1. DILTIA XT (WATSON LABORATORIES) [Suspect]
     Indication: HYPERTENSION
     Dosage: 15 MG, SINGLE
     Route: 048
     Dates: start: 20070101
  2. DILTIA XT (WATSON LABORATORIES) [Suspect]
     Dosage: 1 TABLET SINGLE
     Route: 048
  3. AMOXICILLIN [Concomitant]
     Indication: DRUG USE FOR UNKNOWN INDICATION
     Dosage: 1 TABLET, SINGLE
     Route: 048

REACTIONS (1)
  - ANAPHYLACTIC SHOCK [None]
